FAERS Safety Report 23792324 (Version 1)
Quarter: 2024Q2

REPORT INFORMATION
  Report Type: Spontaneous
  Country: CN (occurrence: CN)
  Receive Date: 20240429
  Receipt Date: 20240429
  Transmission Date: 20240716
  Serious: Yes (Other)
  Sender: FDA-Public Use
  Company Number: CN-Jiangsu Hansoh Pharmaceutical Co., Ltd-2156183

PATIENT
  Age: 87 Year
  Sex: Male

DRUGS (2)
  1. MICAFUNGIN SODIUM [Suspect]
     Active Substance: MICAFUNGIN SODIUM
     Indication: Pneumonia
     Route: 041
     Dates: start: 20240318, end: 20240318
  2. Imipenem-cilastatin sodium for injection [Concomitant]
     Route: 041
     Dates: start: 20240318, end: 20240318

REACTIONS (4)
  - Tachypnoea [Recovered/Resolved]
  - Off label use [Unknown]
  - Chromaturia [Recovered/Resolved]
  - Palpitations [Recovered/Resolved]

NARRATIVE: CASE EVENT DATE: 20240318
